FAERS Safety Report 6626190-8 (Version None)
Quarter: 2010Q1

REPORT INFORMATION
  Report Type: 
  Country: None (occurrence: None)
  Receive Date: 20100309
  Receipt Date: 20100309
  Transmission Date: 20100710
  Serious: Yes (Life-Threatening, Hospitalization, Disabling)
  Sender: FDA-Public Use
  Company Number: None

PATIENT
  Sex: Male
  Weight: 78 kg

DRUGS (1)
  1. RANEXA [Suspect]
     Indication: CHEST PAIN
     Dosage: 500MG BID PO ^SEVERAL MONTHS^
     Route: 048

REACTIONS (6)
  - DYSPNOEA [None]
  - ELECTROCARDIOGRAM QT PROLONGED [None]
  - LOSS OF CONSCIOUSNESS [None]
  - TORSADE DE POINTES [None]
  - TREMOR [None]
  - UNRESPONSIVE TO STIMULI [None]
